FAERS Safety Report 21852889 (Version 1)
Quarter: 2023Q1

REPORT INFORMATION
  Report Type: Spontaneous
  Country: US (occurrence: US)
  Receive Date: 20230112
  Receipt Date: 20230112
  Transmission Date: 20230417
  Serious: No
  Sender: FDA-Public Use
  Company Number: US-APOTEX-2022AP010050

PATIENT
  Age: 15 Year
  Sex: Male

DRUGS (19)
  1. CARBIDOPA\LEVODOPA [Suspect]
     Active Substance: CARBIDOPA\LEVODOPA
     Indication: Dystonia
     Dosage: UNK
     Route: 065
     Dates: start: 201606, end: 201812
  2. LITHIUM [Suspect]
     Active Substance: LITHIUM
     Indication: Bipolar disorder
     Dosage: UNK
     Route: 065
     Dates: start: 2018
  3. LITHIUM [Suspect]
     Active Substance: LITHIUM
     Dosage: UNK
     Route: 065
     Dates: start: 202004
  4. QUETIAPINE [Suspect]
     Active Substance: QUETIAPINE
     Indication: Bipolar disorder
     Dosage: UNK
     Route: 065
     Dates: start: 2018
  5. BACLOFEN [Concomitant]
     Active Substance: BACLOFEN
     Indication: Dystonia
     Dosage: UNK
     Route: 048
     Dates: start: 201604
  6. BACLOFEN [Concomitant]
     Active Substance: BACLOFEN
     Indication: Dystonia
     Dosage: 745.2 MICROGRAM, QD
     Route: 037
     Dates: start: 201606, end: 201812
  7. BACLOFEN [Concomitant]
     Active Substance: BACLOFEN
     Dosage: 437.9 MICROGRAM, QD
     Route: 037
     Dates: start: 201609
  8. BACLOFEN [Concomitant]
     Active Substance: BACLOFEN
     Dosage: 819.72 MICROGRAM, QD
     Route: 037
     Dates: start: 201812, end: 202001
  9. BACLOFEN [Concomitant]
     Active Substance: BACLOFEN
     Dosage: 1100 MICROGRAM, QD
     Route: 037
     Dates: start: 202001, end: 202003
  10. BACLOFEN [Concomitant]
     Active Substance: BACLOFEN
     Dosage: 100 MICROGRAM, QD
     Route: 037
     Dates: start: 202003, end: 202003
  11. BACLOFEN [Concomitant]
     Active Substance: BACLOFEN
     Dosage: 275 MICROGRAM, QD
     Route: 037
     Dates: start: 202003, end: 202004
  12. BACLOFEN [Concomitant]
     Active Substance: BACLOFEN
     Dosage: 375.4 MICROGRAM, QD
     Route: 037
     Dates: start: 202004, end: 202007
  13. BOTULINUM TOXIN NOS [Concomitant]
     Active Substance: BOTULINUM TOXIN NOS
     Indication: Dystonia
     Dosage: UNK
     Route: 065
  14. CARIPRAZINE [Concomitant]
     Active Substance: CARIPRAZINE
     Indication: Bipolar disorder
     Dosage: UNK
     Route: 065
     Dates: start: 202004
  15. LAMOTRIGINE [Concomitant]
     Active Substance: LAMOTRIGINE
     Indication: Bipolar disorder
     Dosage: UNK
     Route: 065
     Dates: start: 2018
  16. LAMOTRIGINE [Concomitant]
     Active Substance: LAMOTRIGINE
     Dosage: 150 MILLIGRAM, BID
     Route: 065
     Dates: start: 202004
  17. VALPROIC ACID [Concomitant]
     Active Substance: VALPROIC ACID
     Indication: Product used for unknown indication
     Dosage: 375 MILLIGRAM, BID
     Route: 065
  18. DIAZEPAM [Concomitant]
     Active Substance: DIAZEPAM
     Indication: Product used for unknown indication
     Dosage: 1 MILLIGRAM, BID
     Route: 065
  19. CITALOPRAM [Concomitant]
     Active Substance: CITALOPRAM HYDROBROMIDE
     Indication: Product used for unknown indication
     Dosage: 10 MILLIGRAM, Q.H.S.
     Route: 065

REACTIONS (3)
  - Adverse drug reaction [Unknown]
  - Drug intolerance [Unknown]
  - Depressed mood [Recovered/Resolved]

NARRATIVE: CASE EVENT DATE: 20180101
